FAERS Safety Report 8485057-3 (Version None)
Quarter: 2012Q2

REPORT INFORMATION
  Report Type: 
  Country: None (occurrence: None)
  Receive Date: 20120625
  Receipt Date: 20120611
  Transmission Date: 20120825
  Serious: Yes (Death)
  Sender: FDA-Public Use
  Company Number: UTC-019861

PATIENT
  Age: 35 Year
  Sex: Female
  Weight: 65.91 kg

DRUGS (3)
  1. DIURETICS (DIURETICS) [Concomitant]
  2. REVATIO [Concomitant]
  3. REMODULIN [Suspect]
     Indication: PULMONARY HYPERTENSION
     Dosage: 158.4 UG/KG (0.11 UG/KG, 1 IN 1 MIN.)
     Dates: start: 20080402

REACTIONS (1)
  - DEATH [None]
